FAERS Safety Report 11818690 (Version 1)
Quarter: 2015Q4

REPORT INFORMATION
  Report Type: Spontaneous
  Country: US (occurrence: None)
  Receive Date: 20151209
  Receipt Date: 20151209
  Transmission Date: 20160305
  Serious: Yes (Hospitalization)
  Sender: FDA-Public Use
  Company Number: None

PATIENT
  Age: 85 Year
  Sex: Male
  Weight: 71.3 kg

DRUGS (24)
  1. ALBUTEROL. [Concomitant]
     Active Substance: ALBUTEROL
  2. PULMICORT TURBUHALER [Concomitant]
     Active Substance: BUDESONIDE
  3. PREVACID [Concomitant]
     Active Substance: LANSOPRAZOLE
  4. ZOFRAN [Concomitant]
     Active Substance: ONDANSETRON HYDROCHLORIDE
  5. PLAVIX [Suspect]
     Active Substance: CLOPIDOGREL BISULFATE
     Indication: CORONARY ARTERY DISEASE
     Dosage: CHRONIC
     Route: 048
  6. ASA [Suspect]
     Active Substance: ASPIRIN
     Indication: CORONARY ARTERY BYPASS
     Dosage: CHRONIC
     Route: 048
  7. COLACE [Concomitant]
     Active Substance: DOCUSATE SODIUM
  8. DUONEB [Concomitant]
     Active Substance: ALBUTEROL SULFATE\IPRATROPIUM BROMIDE
  9. PLAVIX [Suspect]
     Active Substance: CLOPIDOGREL BISULFATE
     Indication: CORONARY ARTERY BYPASS
     Dosage: CHRONIC
     Route: 048
  10. SYNTHROID [Concomitant]
     Active Substance: LEVOTHYROXINE SODIUM
  11. PRINIVIL [Concomitant]
     Active Substance: LISINOPRIL
  12. CLARITIN [Concomitant]
     Active Substance: LORATADINE
  13. MAG HYDROXIDE [Concomitant]
  14. FLOMAX [Concomitant]
     Active Substance: TAMSULOSIN HYDROCHLORIDE
  15. LASIX [Concomitant]
     Active Substance: FUROSEMIDE
  16. ATENOLOL. [Concomitant]
     Active Substance: ATENOLOL
  17. SENOKOT [Concomitant]
     Active Substance: SENNOSIDES
  18. NORCO [Concomitant]
     Active Substance: ACETAMINOPHEN\HYDROCODONE BITARTRATE
  19. VITAMIN D3 [Concomitant]
     Active Substance: CHOLECALCIFEROL
  20. KDER [Concomitant]
  21. ASA [Suspect]
     Active Substance: ASPIRIN
     Indication: CORONARY ARTERY DISEASE
     Dosage: CHRONIC
     Route: 048
  22. LEXAPRO [Concomitant]
     Active Substance: ESCITALOPRAM OXALATE
  23. UTI-STAT [Concomitant]
  24. MIRALAX [Concomitant]
     Active Substance: POLYETHYLENE GLYCOL 3350

REACTIONS (3)
  - Oesophagitis [None]
  - Upper gastrointestinal haemorrhage [None]
  - Duodenal ulcer haemorrhage [None]

NARRATIVE: CASE EVENT DATE: 20150512
